FAERS Safety Report 22296812 (Version 2)
Quarter: 2023Q2

REPORT INFORMATION
  Report Type: Report from Study
  Country: US (occurrence: US)
  Receive Date: 20230509
  Receipt Date: 20230614
  Transmission Date: 20230722
  Serious: Yes (Other)
  Sender: FDA-Public Use
  Company Number: US-ABBVIE-4757433

PATIENT
  Age: 74 Year
  Sex: Female

DRUGS (1)
  1. RINVOQ [Suspect]
     Active Substance: UPADACITINIB
     Indication: Rheumatoid arthritis
     Route: 048
     Dates: start: 202101

REACTIONS (7)
  - Splenic artery aneurysm [Recovering/Resolving]
  - Transient ischaemic attack [Recovered/Resolved]
  - Balance disorder [Recovering/Resolving]
  - Blood cholesterol increased [Recovering/Resolving]
  - Vertigo [Recovering/Resolving]
  - Loss of consciousness [Unknown]
  - Fall [Unknown]

NARRATIVE: CASE EVENT DATE: 20230201
